FAERS Safety Report 6975816-8 (Version None)
Quarter: 2010Q3

REPORT INFORMATION
  Report Type: 
  Country: None (occurrence: None)
  Receive Date: 20100910
  Receipt Date: 20100902
  Transmission Date: 20110219
  Serious: Yes (Hospitalization)
  Sender: FDA-Public Use
  Company Number: US-ELI_LILLY_AND_COMPANY-US201009000764

PATIENT
  Sex: Male
  Weight: 141.95 kg

DRUGS (13)
  1. BYETTA [Suspect]
     Indication: TYPE 2 DIABETES MELLITUS
     Dosage: 5 UG, 2/D
     Route: 058
  2. BYETTA [Suspect]
     Dosage: 10 UG, 2/D
     Route: 058
  3. METFORMIN [Concomitant]
     Indication: TYPE 2 DIABETES MELLITUS
     Dosage: 1000 MG, 2/D
     Route: 048
  4. LASIX [Concomitant]
     Indication: HYPERTENSION
     Dosage: 40 MG, DAILY (1/D)
     Route: 065
  5. KLOR-CON [Concomitant]
     Indication: MINERAL SUPPLEMENTATION
     Dosage: 20 MEQ, DAILY (1/D)
     Route: 065
  6. NIFEDIPINE [Concomitant]
     Indication: ATRIAL FIBRILLATION
     Dosage: 60 MG, DAILY (1/D)
     Route: 065
  7. ASPIRIN [Concomitant]
     Indication: PRODUCT USED FOR UNKNOWN INDICATION
     Dosage: UNK, DAILY (1/D)
  8. ATENOLOL [Concomitant]
     Indication: HYPERTENSION
     Dosage: 150 MG, DAILY (1/D)
     Route: 065
  9. DILTIAZEM [Concomitant]
     Indication: ATRIAL FIBRILLATION
     Dosage: UNK, DAILY (1/D)
  10. DIGOXIN [Concomitant]
     Indication: ATRIAL FIBRILLATION
     Dosage: 0.25 MG, DAILY (1/D)
     Route: 065
  11. LISINOPRIL [Concomitant]
     Indication: ATRIAL FIBRILLATION
     Dosage: 40 MG, DAILY (1/D)
     Route: 065
  12. IRON [Concomitant]
     Indication: MINERAL SUPPLEMENTATION
     Dosage: UNK, DAILY (1/D)
     Route: 065
  13. GLUCOSAMINE CHONDROITIN [Concomitant]
     Indication: ARTHRITIS
     Dosage: UNK, DAILY (1/D)
     Route: 065

REACTIONS (6)
  - DRUG EFFECT DECREASED [None]
  - GASTROINTESTINAL HAEMORRHAGE [None]
  - MELAENA [None]
  - OFF LABEL USE [None]
  - RECTAL HAEMORRHAGE [None]
  - WEIGHT DECREASED [None]
